FAERS Safety Report 6845192-X (Version None)
Quarter: 2010Q3

REPORT INFORMATION
  Report Type: 
  Country: None (occurrence: None)
  Receive Date: 20100715
  Receipt Date: 20070816
  Transmission Date: 20110219
  Serious: No
  Sender: FDA-Public Use
  Company Number: US-PFIZER INC-2007069611

PATIENT
  Sex: Male
  Weight: 100 kg

DRUGS (7)
  1. CHANTIX [Suspect]
     Indication: SMOKING CESSATION THERAPY
     Dates: start: 20070801
  2. PRILOSEC [Concomitant]
  3. CARAFATE [Concomitant]
  4. PROMETHAZINE [Concomitant]
  5. ANAFLEX [Concomitant]
  6. AMBIEN [Concomitant]
  7. OXYCONTIN [Concomitant]

REACTIONS (2)
  - ABDOMINAL DISTENSION [None]
  - FLATULENCE [None]
